FAERS Safety Report 9859008 (Version 1)
Quarter: 2014Q1

REPORT INFORMATION
  Report Type: Spontaneous
  Country: US (occurrence: None)
  Receive Date: 20140129
  Receipt Date: 20140129
  Transmission Date: 20141002
  Serious: Yes (Hospitalization)
  Sender: FDA-Public Use
  Company Number: 2014-US-000519

PATIENT
  Age: 57 Year
  Sex: Female

DRUGS (1)
  1. XYREM (SODIUM OXYBATE) ORAL SOLUTION, 500 MG/ML [Suspect]
     Indication: FIBROMYALGIA
     Dosage: 2.25 G, BID, ORAL
     Route: 048
     Dates: start: 201002, end: 2010

REACTIONS (1)
  - Mental disorder [None]
